FAERS Safety Report 21744666 (Version 1)
Quarter: 2022Q4

REPORT INFORMATION
  Report Type: Spontaneous
  Country: US (occurrence: US)
  Receive Date: 20221218
  Receipt Date: 20221218
  Transmission Date: 20230112
  Serious: No
  Sender: FDA-Public Use
  Company Number: US-BRISTOL-MYERS SQUIBB COMPANY-2022-154539

PATIENT
  Age: 62 Year
  Sex: Female

DRUGS (1)
  1. ELIQUIS [Suspect]
     Active Substance: APIXABAN
     Indication: Product used for unknown indication
     Route: 048
     Dates: start: 20221128, end: 20221205

REACTIONS (4)
  - Fatigue [Unknown]
  - Nausea [Unknown]
  - Dizziness [Unknown]
  - Muscle spasms [Unknown]

NARRATIVE: CASE EVENT DATE: 20221129
